FAERS Safety Report 8179912-1 (Version None)
Quarter: 2012Q1

REPORT INFORMATION
  Report Type: 
  Country: None (occurrence: None)
  Receive Date: 20120302
  Receipt Date: 20120220
  Transmission Date: 20120608
  Serious: Yes (Other)
  Sender: FDA-Public Use
  Company Number: GB-BRISTOL-MYERS SQUIBB COMPANY-16407256

PATIENT
  Age: 54 Year
  Sex: Male

DRUGS (1)
  1. BARACLUDE [Suspect]
     Indication: HEPATITIS B
     Dosage: REINTIATED BTW AUG09 AND 2010
     Dates: start: 20080101

REACTIONS (5)
  - MACULOPATHY [None]
  - RETINAL DEPIGMENTATION [None]
  - VISUAL ACUITY REDUCED [None]
  - MACULAR OEDEMA [None]
  - SUBRETINAL FIBROSIS [None]
